FAERS Safety Report 15927968 (Version 2)
Quarter: 2019Q1

REPORT INFORMATION
  Report Type: Spontaneous
  Country: US (occurrence: US)
  Receive Date: 20190205
  Receipt Date: 20190219
  Transmission Date: 20190417
  Serious: No
  Sender: FDA-Public Use
  Company Number: US-ALLERGAN-1856470US

PATIENT
  Age: 29 Year
  Sex: Male
  Weight: 74.83 kg

DRUGS (2)
  1. BOTOX COSMETIC [Suspect]
     Active Substance: ONABOTULINUMTOXINA
     Indication: SKIN WRINKLING
  2. BOTOX COSMETIC [Suspect]
     Active Substance: ONABOTULINUMTOXINA
     Indication: SKIN WRINKLING
     Dosage: ACTUAL: 4U EACH TO THREE DIFFERENT GLABELLA AREAS; 2U EACH TO ELEVEN DIFFERENT FOREHEAD AREAS
     Route: 030

REACTIONS (1)
  - Drug ineffective [Unknown]
